FAERS Safety Report 11702196 (Version 1)
Quarter: 2015Q4

REPORT INFORMATION
  Report Type: Spontaneous
  Country: IT (occurrence: CH)
  Receive Date: 20151105
  Receipt Date: 20151105
  Transmission Date: 20160304
  Serious: Yes (Hospitalization, Other)
  Sender: FDA-Public Use
  Company Number: CH-FRI-1000080639

PATIENT
  Age: 0 Year
  Sex: Male
  Weight: .41 kg

DRUGS (7)
  1. VENTOLIN [Suspect]
     Active Substance: ALBUTEROL SULFATE
     Route: 064
  2. DAFALGAN [Suspect]
     Active Substance: ACETAMINOPHEN
  3. DIOVAN [Suspect]
     Active Substance: VALSARTAN
     Dosage: UNK
     Route: 064
     Dates: end: 20131201
  4. LESCOL [Suspect]
     Active Substance: FLUVASTATIN SODIUM
     Route: 064
     Dates: end: 20131130
  5. XYZAL [Suspect]
     Active Substance: LEVOCETIRIZINE DIHYDROCHLORIDE
     Route: 064
  6. NEBIVOLOL. [Suspect]
     Active Substance: NEBIVOLOL
     Route: 064
  7. SYMBICORT [Suspect]
     Active Substance: BUDESONIDE\FORMOTEROL FUMARATE DIHYDRATE
     Route: 064

REACTIONS (16)
  - Premature baby [Recovered/Resolved]
  - Neonatal respiratory distress syndrome [Recovered/Resolved]
  - Bronchopulmonary dysplasia [Recovered/Resolved]
  - Thrombocytopenia [Recovered/Resolved]
  - Congenital inguinal hernia [Recovered/Resolved]
  - Foetal exposure during pregnancy [Recovered/Resolved]
  - Foetal growth restriction [Recovered/Resolved]
  - Hypokalaemia [Recovered/Resolved]
  - Hyperbilirubinaemia [Recovered/Resolved]
  - Atrial septal defect [Unknown]
  - Metabolic alkalosis [Recovered/Resolved]
  - Renal failure [Recovered/Resolved]
  - Neonatal infection [Recovered/Resolved]
  - Patent ductus arteriosus [Recovered/Resolved]
  - Hypoglycaemia neonatal [Recovered/Resolved]
  - Anaemia [Recovered/Resolved]
